FAERS Safety Report 17571650 (Version 2)
Quarter: 2020Q1

REPORT INFORMATION
  Report Type: Spontaneous
  Country: US (occurrence: US)
  Receive Date: 20200323
  Receipt Date: 20200331
  Transmission Date: 20200409
  Serious: No
  Sender: FDA-Public Use
  Company Number: US-THERATECHNOLOGIES INC.-2020-THE-TES-000063

PATIENT
  Sex: Male

DRUGS (1)
  1. EGRIFTA [Suspect]
     Active Substance: TESAMORELIN ACETATE
     Indication: PRODUCT USED FOR UNKNOWN INDICATION
     Route: 065

REACTIONS (3)
  - Injection site pain [Unknown]
  - Product quality issue [Unknown]
  - Intentional product misuse [Unknown]
